FAERS Safety Report 5762422-6 (Version None)
Quarter: 2008Q2

REPORT INFORMATION
  Report Type: 
  Country: None (occurrence: None)
  Receive Date: 20080609
  Receipt Date: 20080529
  Transmission Date: 20081010
  Serious: Yes (Life-Threatening)
  Sender: FDA-Public Use
  Company Number: SK-JNJFOC-20080505762

PATIENT
  Sex: Male

DRUGS (3)
  1. DURAGESIC-100 [Suspect]
     Indication: ABDOMINAL PAIN
     Route: 062
  2. MESOCAIN [Suspect]
     Indication: ANAESTHESIA
     Route: 065
  3. METAMIZOLE [Suspect]
     Indication: PAIN
     Route: 065

REACTIONS (2)
  - HEPATORENAL FAILURE [None]
  - RASH MACULAR [None]
